FAERS Safety Report 7570193-6 (Version None)
Quarter: 2011Q2

REPORT INFORMATION
  Report Type: 
  Country: None (occurrence: None)
  Receive Date: 20110624
  Receipt Date: 20110607
  Transmission Date: 20111010
  Serious: No
  Sender: FDA-Public Use
  Company Number: US-B.I. PHARMACEUTICALS,INC./RIDGEFIELD-2011-BP-11627BP

PATIENT
  Sex: Female

DRUGS (10)
  1. LISINOPRIL [Concomitant]
     Indication: HYPERTENSION
     Dosage: 15 MG
     Route: 048
  2. PRADAXA [Suspect]
     Indication: ATRIAL FIBRILLATION
     Dosage: 300 MG
     Route: 048
     Dates: start: 20110326
  3. NAPROXEN [Concomitant]
     Indication: ARTHRITIS
     Dosage: 1000 MG
     Route: 048
  4. ASPIRIN [Concomitant]
     Indication: PROPHYLAXIS
     Dosage: 81 MG
     Route: 048
  5. GABAPENTIN [Concomitant]
     Indication: BACK PAIN
     Route: 048
  6. LISINOPRIL [Concomitant]
     Dosage: 15 MG
     Route: 048
  7. AMLODIPINE [Concomitant]
     Indication: HYPERTENSION
     Dosage: 10 MG
     Route: 048
  8. NORVASC [Concomitant]
     Indication: HYPERTENSION
     Dosage: 10 MG
     Route: 048
  9. TOPROL-XL [Concomitant]
     Indication: HYPERTENSION
     Dosage: 25 MG
     Route: 048
  10. NORPACE [Concomitant]
     Indication: ARRHYTHMIA
     Dosage: 200 MG
     Route: 048

REACTIONS (5)
  - ORAL DISCOMFORT [None]
  - COUGH [None]
  - DYSPHONIA [None]
  - THROAT LESION [None]
  - THROAT IRRITATION [None]
